FAERS Safety Report 8076605-6 (Version None)
Quarter: 2012Q1

REPORT INFORMATION
  Report Type: 
  Country: None (occurrence: None)
  Receive Date: 20120127
  Receipt Date: 20120114
  Transmission Date: 20120608
  Serious: Yes (Other)
  Sender: FDA-Public Use
  Company Number: DE-AMGEN-DEUSP2012004203

PATIENT
  Age: 52 Year
  Sex: Female

DRUGS (4)
  1. DIETHYL-STILBESTROL TAB [Concomitant]
     Dosage: UNK
  2. CORTISONE ACETATE [Concomitant]
     Dosage: UNK, AS NEEDED
  3. ENBREL [Suspect]
     Indication: PSORIATIC ARTHROPATHY
     Dosage: 50 MG, WEEKLY
     Route: 058
     Dates: start: 20110703
  4. METHOTREXATE [Concomitant]
     Dosage: UNK

REACTIONS (6)
  - LUNG INFECTION [None]
  - DRUG EFFECT DECREASED [None]
  - FATIGUE [None]
  - BRONCHITIS [None]
  - CHILLS [None]
  - PAIN [None]
